FAERS Safety Report 4315648-2 (Version None)
Quarter: 2004Q1

REPORT INFORMATION
  Report Type: 
  Country: None (occurrence: None)
  Receive Date: 20040310
  Receipt Date: 20040301
  Transmission Date: 20041129
  Serious: Yes (Other)
  Sender: FDA-Public Use
  Company Number: USA-2003-0006889

PATIENT
  Age: 22 Year
  Sex: Male

DRUGS (2)
  1. OXYCONTIN [Suspect]
  2. METHADONE HCL [Suspect]

REACTIONS (7)
  - DELUSION [None]
  - DRUG ABUSER [None]
  - DRUG DEPENDENCE [None]
  - MEMORY IMPAIRMENT [None]
  - MULTIPLE DRUG OVERDOSE [None]
  - MURDER [None]
  - SUICIDAL IDEATION [None]
